FAERS Safety Report 6347384-5 (Version None)
Quarter: 2009Q3

REPORT INFORMATION
  Report Type: 
  Country: None (occurrence: None)
  Receive Date: 20090910
  Receipt Date: 20090831
  Transmission Date: 20100115
  Serious: Yes (Hospitalization, Disabling, Other)
  Sender: FDA-Public Use
  Company Number: US-JNJFOC-20090708097

PATIENT
  Sex: Female
  Weight: 42.64 kg

DRUGS (19)
  1. REMICADE [Suspect]
     Route: 042
     Dates: start: 20001006, end: 20090630
  2. REMICADE [Suspect]
     Route: 042
     Dates: start: 20001006, end: 20090630
  3. REMICADE [Suspect]
     Route: 042
     Dates: start: 20001006, end: 20090630
  4. REMICADE [Suspect]
     Route: 042
     Dates: start: 20001006, end: 20090630
  5. REMICADE [Suspect]
     Dosage: 9 INFUSIONS
     Route: 042
     Dates: start: 20001006, end: 20090630
  6. REMICADE [Suspect]
     Dosage: 38 INFUSIONS
     Route: 042
     Dates: start: 20001006, end: 20090630
  7. REMICADE [Suspect]
     Indication: CROHN'S DISEASE
     Dosage: IN THE YEAR PRIOR TO BASELINE
     Route: 042
     Dates: start: 20001006, end: 20090630
  8. ATIVAN [Suspect]
     Indication: CROHN'S DISEASE
  9. ALL OTHER NON-THERAPEUTIC PRODUCTS [Concomitant]
     Indication: WITHDRAWAL SYNDROME
  10. ANTIDEPRESSANT [Concomitant]
     Indication: CROHN'S DISEASE
  11. MERCAPTOPURINE [Concomitant]
     Indication: CROHN'S DISEASE
  12. ALL OTHER THERAPEUTIC PRODUCTS [Concomitant]
  13. ANTIHISTAMINES [Concomitant]
     Indication: PREMEDICATION
  14. ACETAMINOPHEN [Concomitant]
     Indication: PREMEDICATION
  15. CIPROFLAXACIN [Concomitant]
  16. CARAFATE [Concomitant]
  17. LOMOTIL [Concomitant]
  18. LORAZEPAM [Concomitant]
  19. OXYCODONE [Concomitant]

REACTIONS (5)
  - ANXIETY [None]
  - BACK PAIN [None]
  - DEPRESSION [None]
  - DRUG DEPENDENCE [None]
  - WITHDRAWAL SYNDROME [None]
